FAERS Safety Report 18182099 (Version 1)
Quarter: 2020Q3

REPORT INFORMATION
  Report Type: Spontaneous
  Country: PG (occurrence: PG)
  Receive Date: 20200821
  Receipt Date: 20200821
  Transmission Date: 20201103
  Serious: Yes (Hospitalization, Other)
  Sender: FDA-Public Use
  Company Number: PG-JNJFOC-20200819819

PATIENT
  Age: 61 Year
  Sex: Male
  Weight: 58 kg

DRUGS (8)
  1. BEDAQUILINE [Suspect]
     Active Substance: BEDAQUILINE
     Indication: PULMONARY TUBERCULOSIS
     Route: 048
     Dates: start: 20190911, end: 20191212
  2. ABACAVIR W/DOLUTEGRAVIR/LAMIVUDINE [Concomitant]
     Active Substance: ABACAVIR SULFATE\DOLUTEGRAVIR SODIUM\LAMIVUDINE
     Indication: HIV INFECTION
     Route: 065
     Dates: start: 20200529
  3. SEPTRIN [Concomitant]
     Active Substance: SULFAMETHOXAZOLE\TRIMETHOPRIM
     Indication: HIV INFECTION
     Route: 065
     Dates: start: 20190911
  4. LEVOFLOXACIN. [Suspect]
     Active Substance: LEVOFLOXACIN
     Indication: PULMONARY TUBERCULOSIS
     Route: 048
     Dates: start: 20190911
  5. LAMIVUDINE W/NEVIRAPINE/TENOFOVIR DISOPROXIL [Concomitant]
     Indication: HIV INFECTION
     Route: 065
     Dates: start: 20190911
  6. LINEZOLID. [Suspect]
     Active Substance: LINEZOLID
     Indication: PULMONARY TUBERCULOSIS
     Route: 048
     Dates: start: 20190911
  7. CYCLOSERINE. [Suspect]
     Active Substance: CYCLOSERINE
     Indication: PULMONARY TUBERCULOSIS
     Route: 048
     Dates: start: 20200603
  8. CLOFAZIMINE [Suspect]
     Active Substance: CLOFAZIMINE
     Indication: PULMONARY TUBERCULOSIS
     Route: 048
     Dates: start: 20190911

REACTIONS (6)
  - Off label use [Unknown]
  - Intentional product use issue [Unknown]
  - Anaemia [Recovering/Resolving]
  - Nephropathy toxic [Recovering/Resolving]
  - Blood creatinine increased [Recovering/Resolving]
  - Hepatotoxicity [Recovered/Resolved]

NARRATIVE: CASE EVENT DATE: 20191230
